FAERS Safety Report 10255841 (Version 1)
Quarter: 2014Q2

REPORT INFORMATION
  Report Type: Spontaneous
  Country: US (occurrence: US)
  Receive Date: 20140624
  Receipt Date: 20140624
  Transmission Date: 20141212
  Serious: No
  Sender: FDA-Public Use
  Company Number: US-THROMBOGENICS INC-JET-2014-210

PATIENT
  Sex: Female

DRUGS (1)
  1. JETREA [Suspect]
     Indication: PRODUCT USED FOR UNKNOWN INDICATION
     Dosage: 0.125 MG, ONE TIME DOSE

REACTIONS (3)
  - Retinal oedema [Unknown]
  - Visual acuity reduced transiently [Recovered/Resolved]
  - Vitreous floaters [Recovered/Resolved]
